FAERS Safety Report 12597397 (Version 2)
Quarter: 2017Q2

REPORT INFORMATION
  Report Type: Spontaneous
  Country: JP (occurrence: JP)
  Receive Date: 20160727
  Receipt Date: 20170424
  Transmission Date: 20170830
  Serious: Yes (Other)
  Sender: FDA-Public Use
  Company Number: JP-EMD SERONO-8096853

PATIENT
  Age: 4 Decade
  Sex: Female

DRUGS (1)
  1. GONAL-F [Suspect]
     Active Substance: FOLLITROPIN
     Indication: OVARIAN FAILURE
     Route: 058

REACTIONS (2)
  - Hypopituitarism [Unknown]
  - Amniotic fluid volume decreased [Unknown]
